FAERS Safety Report 9234208 (Version 5)
Quarter: 2014Q4

REPORT INFORMATION
  Report Type: Spontaneous
  Country: US (occurrence: US)
  Receive Date: 20130416
  Receipt Date: 20141020
  Transmission Date: 20150529
  Serious: Yes (Hospitalization, Other)
  Sender: FDA-Public Use
  Company Number: US-009507513-1304USA005353

PATIENT
  Sex: Male

DRUGS (1)
  1. PROPECIA [Suspect]
     Active Substance: FINASTERIDE
     Indication: ANDROGENETIC ALOPECIA
     Dosage: 1 MG, BID
     Route: 048
     Dates: start: 200607, end: 20071121

REACTIONS (14)
  - Cognitive disorder [Not Recovered/Not Resolved]
  - Hernia repair [Unknown]
  - Synovial cyst [Unknown]
  - Prostate cancer [Unknown]
  - Inguinal hernia [Unknown]
  - Urinary incontinence [Unknown]
  - Inguinal hernia, obstructive [Unknown]
  - Alopecia [Unknown]
  - Tendon injury [Unknown]
  - Radical prostatectomy [Unknown]
  - Sexual dysfunction [Not Recovered/Not Resolved]
  - Overdose [Unknown]
  - Erectile dysfunction [Unknown]
  - Liver function test abnormal [Unknown]

NARRATIVE: CASE EVENT DATE: 20070129
